FAERS Safety Report 25445395 (Version 1)
Quarter: 2025Q2

REPORT INFORMATION
  Report Type: Spontaneous
  Country: US (occurrence: US)
  Receive Date: 20250617
  Receipt Date: 20250617
  Transmission Date: 20250716
  Serious: No
  Sender: NANJING KING-FRIEND BIOCHEMICAL PHARMACEUTICAL
  Company Number: US-MEITHEAL-2025MPSPO00192

PATIENT
  Age: 63 Year
  Sex: Female

DRUGS (2)
  1. ENOXAPARIN SODIUM [Suspect]
     Active Substance: ENOXAPARIN SODIUM
     Indication: Pulmonary embolism
     Route: 065
     Dates: start: 20250204
  2. ENOXAPARIN SODIUM [Suspect]
     Active Substance: ENOXAPARIN SODIUM

REACTIONS (4)
  - Injection site bruising [Unknown]
  - Peripheral swelling [Unknown]
  - Device defective [Unknown]
  - Needle issue [Unknown]

NARRATIVE: CASE EVENT DATE: 20250501
